FAERS Safety Report 10145897 (Version 2)
Quarter: 2014Q2

REPORT INFORMATION
  Report Type: Report from Study
  Country: US (occurrence: US)
  Receive Date: 20140501
  Receipt Date: 20140501
  Transmission Date: 20141212
  Serious: No
  Sender: FDA-Public Use
  Company Number: US-ABBVIE-13P-163-1068454-00

PATIENT
  Sex: Female

DRUGS (1)
  1. CREON [Suspect]
     Indication: PANCREATIC INSUFFICIENCY

REACTIONS (7)
  - Gastric pH decreased [Unknown]
  - Nausea [Unknown]
  - Gastrointestinal pain [Unknown]
  - Steatorrhoea [Unknown]
  - Weight decreased [Unknown]
  - Enzyme abnormality [Unknown]
  - Drug ineffective [Unknown]
